FAERS Safety Report 20730444 (Version 1)
Quarter: 2022Q2

REPORT INFORMATION
  Report Type: Spontaneous
  Country: US (occurrence: US)
  Receive Date: 20220420
  Receipt Date: 20220420
  Transmission Date: 20220720
  Serious: No
  Sender: FDA-Public Use
  Company Number: US-PFIZER INC-202200488755

PATIENT
  Age: 69 Year
  Sex: Female
  Weight: 58.97 kg

DRUGS (2)
  1. XANAX [Suspect]
     Active Substance: ALPRAZOLAM
     Indication: Tremor
     Dosage: 1 MG, 3X/DAY
     Dates: start: 202102
  2. XANAX [Suspect]
     Active Substance: ALPRAZOLAM
     Indication: Hypertension

REACTIONS (6)
  - Drug ineffective [Unknown]
  - Throat tightness [Unknown]
  - Intentional product misuse [Unknown]
  - Chest discomfort [Not Recovered/Not Resolved]
  - Product solubility abnormal [Unknown]
  - Feeling abnormal [Not Recovered/Not Resolved]

NARRATIVE: CASE EVENT DATE: 20220311
